FAERS Safety Report 26001419 (Version 2)
Quarter: 2025Q4

REPORT INFORMATION
  Report Type: Spontaneous
  Country: JP (occurrence: JP)
  Receive Date: 20251105
  Receipt Date: 20251106
  Transmission Date: 20260118
  Serious: Yes (Life-Threatening, Hospitalization)
  Sender: BAUSCH AND LOMB
  Company Number: JP-MLMSERVICE-20251020-PI683563-00079-1

PATIENT
  Age: 79 Year
  Sex: Female

DRUGS (5)
  1. NIFEDIPINE [Suspect]
     Active Substance: NIFEDIPINE
     Indication: Hypertension
     Route: 065
  2. LAMOTRIGINE [Suspect]
     Active Substance: LAMOTRIGINE
     Indication: Temporal lobe epilepsy
     Route: 065
  3. CARBAMAZEPINE [Suspect]
     Active Substance: CARBAMAZEPINE
     Indication: Temporal lobe epilepsy
     Route: 065
  4. AZILSARTAN KAMEDOXOMIL [Suspect]
     Active Substance: AZILSARTAN KAMEDOXOMIL
     Indication: Hypertension
     Route: 065
  5. AZILSARTAN KAMEDOXOMIL [Suspect]
     Active Substance: AZILSARTAN KAMEDOXOMIL
     Route: 065

REACTIONS (1)
  - BRASH syndrome [Unknown]
